FAERS Safety Report 19491198 (Version 1)
Quarter: 2021Q3

REPORT INFORMATION
  Report Type: Other
  Country: FR (occurrence: FR)
  Receive Date: 20210705
  Receipt Date: 20210705
  Transmission Date: 20211014
  Serious: Yes (Life-Threatening, Hospitalization, Other)
  Sender: FDA-Public Use
  Company Number: FR-ASTELLAS-2021US023714

PATIENT
  Age: 60 Year
  Sex: Female
  Weight: 61 kg

DRUGS (2)
  1. TACROLIMUS. [Suspect]
     Active Substance: TACROLIMUS
     Indication: PROPHYLAXIS AGAINST TRANSPLANT REJECTION
     Dosage: UNK UNK, UNKNOWN FREQ. (NOT SPECIFIED)
     Route: 048
     Dates: start: 20210415, end: 20210417
  2. ITRACONAZOLE. [Interacting]
     Active Substance: ITRACONAZOLE
     Indication: ASPERGILLUS INFECTION
     Dosage: UNK UNK, UNKNOWN FREQ.
     Route: 042
     Dates: start: 20210414, end: 20210419

REACTIONS (5)
  - Hypercreatininaemia [Recovered/Resolved]
  - Product use in unapproved indication [Unknown]
  - Coma [Recovered/Resolved]
  - Miosis [Recovered/Resolved]
  - Drug interaction [Unknown]

NARRATIVE: CASE EVENT DATE: 20210415
